FAERS Safety Report 7884444-1 (Version None)
Quarter: 2011Q4

REPORT INFORMATION
  Report Type: 
  Country: None (occurrence: None)
  Receive Date: 20111102
  Receipt Date: 20110720
  Transmission Date: 20120403
  Serious: No
  Sender: FDA-Public Use
  Company Number: US-ASTRAZENECA-2011SE43533

PATIENT
  Age: 49 Year
  Sex: Male

DRUGS (8)
  1. NORVASC [Concomitant]
  2. HYDREA [Concomitant]
  3. CELEBREX [Concomitant]
  4. CALCIUM 500 [Concomitant]
  5. MULTI-VITAMIN [Concomitant]
  6. OXYCONTIN [Concomitant]
  7. LEVOTHYROXINE SODIUM [Concomitant]
  8. VANDETANIB [Suspect]
     Indication: THYROID CANCER
     Route: 048

REACTIONS (6)
  - DYSPNOEA [None]
  - HAEMORRHAGE [None]
  - BLOOD PRESSURE INCREASED [None]
  - HEART RATE INCREASED [None]
  - DIARRHOEA [None]
  - ARTHRALGIA [None]
